FAERS Safety Report 13693926 (Version 1)
Quarter: 2017Q2

REPORT INFORMATION
  Report Type: Spontaneous
  Country: US (occurrence: US)
  Receive Date: 20170626
  Receipt Date: 20170626
  Transmission Date: 20170830
  Serious: Yes (Other)
  Sender: FDA-Public Use
  Company Number: None

PATIENT
  Age: 47 Year
  Sex: Female

DRUGS (1)
  1. LISINOPRIL TABLETS USP [Suspect]
     Active Substance: LISINOPRIL
     Indication: HYPERTENSION
     Dosage: ?          OTHER STRENGTH:MG;?
     Dates: start: 20170607, end: 20170626

REACTIONS (2)
  - Blood pressure inadequately controlled [None]
  - Product quality issue [None]

NARRATIVE: CASE EVENT DATE: 20170607
